FAERS Safety Report 5486224-3 (Version None)
Quarter: 2007Q4

REPORT INFORMATION
  Report Type: 
  Country: None (occurrence: None)
  Receive Date: 20071012
  Receipt Date: 20070907
  Transmission Date: 20080405
  Serious: Yes (Other)
  Sender: FDA-Public Use
  Company Number: STI-2007-01527

PATIENT
  Age: 74 Year
  Sex: Female

DRUGS (1)
  1. CLOBETASOL (UNSPECIFIED) (CLOBETASOL PROPIONATE) (CLOBETASOL PROPIONAT [Suspect]
     Dosage: NASOLABIAL FOLDS

REACTIONS (8)
  - BURNING SENSATION [None]
  - DRUG DEPENDENCE [None]
  - DRUG WITHDRAWAL SYNDROME [None]
  - ERYTHEMA [None]
  - SKIN ATROPHY [None]
  - SKIN DISCOLOURATION [None]
  - SUICIDAL IDEATION [None]
  - TELANGIECTASIA [None]
